FAERS Safety Report 16731018 (Version 1)
Quarter: 2019Q3

REPORT INFORMATION
  Report Type: Spontaneous
  Country: US (occurrence: US)
  Receive Date: 20190822
  Receipt Date: 20190822
  Transmission Date: 20191005
  Serious: No
  Sender: FDA-Public Use
  Company Number: US-PFIZER INC-2019360098

PATIENT
  Age: 58 Year
  Sex: Female
  Weight: 86.62 kg

DRUGS (1)
  1. IBRANCE [Suspect]
     Active Substance: PALBOCICLIB
     Indication: BREAST CANCER METASTATIC
     Dosage: 125 MG, CYCLIC (DAILY ON DAYS 1-21, 7 DAYS OFF, 28 DAY CYCLE)
     Route: 048
     Dates: start: 20190731

REACTIONS (1)
  - Oropharyngeal pain [Unknown]
